FAERS Safety Report 8454080-7 (Version None)
Quarter: 2012Q2

REPORT INFORMATION
  Report Type: 
  Country: None (occurrence: None)
  Receive Date: 20120620
  Receipt Date: 20120613
  Transmission Date: 20120825
  Serious: Yes (Hospitalization, Other)
  Sender: FDA-Public Use
  Company Number: DK-PFIZER INC-2012082759

PATIENT
  Age: 79 Year
  Sex: Male

DRUGS (8)
  1. SODIUM POLYSTYRENE SULFONATE [Concomitant]
  2. RAMIPRIL [Suspect]
     Indication: CARDIOVASCULAR DISORDER
     Dosage: 10 MG, 2X/DAY
     Route: 048
     Dates: end: 20120307
  3. BUPRENORPHINE [Concomitant]
  4. PENICILLIN NOS [Concomitant]
     Dosage: UNK
     Route: 042
  5. LANTUS [Concomitant]
  6. METHYLPHENIDATE HCL [Concomitant]
  7. HJERTEMAGNYL ^DAK^ [Concomitant]
  8. SIMVASTATIN [Concomitant]

REACTIONS (5)
  - DIABETES MELLITUS [None]
  - HYPERKALAEMIA [None]
  - PNEUMONIA [None]
  - BLOOD CREATININE INCREASED [None]
  - GLOMERULAR FILTRATION RATE DECREASED [None]
